FAERS Safety Report 5309056-5 (Version None)
Quarter: 2007Q2

REPORT INFORMATION
  Report Type: 
  Country: None (occurrence: None)
  Receive Date: 20070420
  Receipt Date: 20070413
  Transmission Date: 20071010
  Serious: Yes (Other)
  Sender: FDA-Public Use
  Company Number: 2007-01885

PATIENT
  Age: 42 Year
  Sex: Female

DRUGS (1)
  1. FERRLECIT [Suspect]
     Indication: DRUG USE FOR UNKNOWN INDICATION
     Dates: start: 20070402, end: 20070402

REACTIONS (5)
  - CHOKING SENSATION [None]
  - DYSPNOEA [None]
  - FLUSHING [None]
  - MENTAL DISORDER [None]
  - VOMITING [None]
